FAERS Safety Report 5742357-5 (Version None)
Quarter: 2008Q2

REPORT INFORMATION
  Report Type: 
  Country: None (occurrence: None)
  Receive Date: 20080514
  Receipt Date: 20080514
  Transmission Date: 20081010
  Serious: Yes (Hospitalization)
  Sender: FDA-Public Use
  Company Number: None

PATIENT
  Sex: Female
  Weight: 94 kg

DRUGS (4)
  1. TAXOL [Suspect]
     Dosage: 346 MG
  2. ALEVE [Concomitant]
  3. DARVOCET [Concomitant]
  4. DECADRON [Concomitant]

REACTIONS (2)
  - PANCREATITIS ACUTE [None]
  - PERFORATED ULCER [None]
